FAERS Safety Report 17879859 (Version 6)
Quarter: 2020Q3

REPORT INFORMATION
  Report Type: Spontaneous
  Country: US (occurrence: US)
  Receive Date: 20200610
  Receipt Date: 20200807
  Transmission Date: 20201103
  Serious: Yes (Other)
  Sender: FDA-Public Use
  Company Number: US-PFIZER INC-2020224046

PATIENT
  Age: 87 Year
  Sex: Male

DRUGS (3)
  1. RETACRIT [Suspect]
     Active Substance: EPOETIN ALFA-EPBX
     Indication: MYELODYSPLASTIC SYNDROME
  2. RETACRIT [Suspect]
     Active Substance: EPOETIN ALFA-EPBX
     Indication: ANTI-ERYTHROPOIETIN ANTIBODY
     Dosage: UNK
     Route: 017
  3. RETACRIT [Suspect]
     Active Substance: EPOETIN ALFA-EPBX
     Indication: APLASIA PURE RED CELL
     Dosage: 80K, WEEKLY
     Route: 058
     Dates: start: 20190925, end: 20200604

REACTIONS (4)
  - Drug ineffective [Unknown]
  - Product use issue [Unknown]
  - Aplasia pure red cell [Not Recovered/Not Resolved]
  - Off label use [Unknown]
